FAERS Safety Report 25768693 (Version 4)
Quarter: 2025Q4

REPORT INFORMATION
  Report Type: Spontaneous
  Country: US (occurrence: US)
  Receive Date: 20250905
  Receipt Date: 20251103
  Transmission Date: 20260118
  Serious: Yes (Other)
  Sender: CALLIDITAS THERAPEUTICS AB
  Company Number: US-Calliditas-2025CAL02673

PATIENT
  Age: 52 Year
  Sex: Male

DRUGS (10)
  1. TARPEYO [Suspect]
     Active Substance: BUDESONIDE
     Indication: Haematuria
     Route: 048
     Dates: start: 20250117
  2. SEROQUEL XR [Suspect]
     Active Substance: QUETIAPINE FUMARATE
     Indication: Bipolar disorder
  3. FILSPARI [Concomitant]
     Active Substance: SPARSENTAN
  4. REPATHA [Concomitant]
     Active Substance: EVOLOCUMAB
  5. VALTREX [Concomitant]
     Active Substance: VALACYCLOVIR HYDROCHLORIDE
  6. NORVASC [Concomitant]
     Active Substance: AMLODIPINE BESYLATE
  7. CBD HANFOEL [Concomitant]
  8. PRILOSEC [Concomitant]
     Active Substance: OMEPRAZOLE MAGNESIUM
  9. ALBUTEROL SULFATE [Concomitant]
     Active Substance: ALBUTEROL SULFATE
  10. SILDENAFIL [Concomitant]
     Active Substance: SILDENAFIL

REACTIONS (19)
  - Weight increased [Not Recovered/Not Resolved]
  - Acne [Not Recovered/Not Resolved]
  - Anxiety [Recovered/Resolved]
  - Mania [Not Recovered/Not Resolved]
  - Duodenal ulcer [Unknown]
  - Joint swelling [Recovered/Resolved]
  - Proteinuria [Unknown]
  - Gastritis [Unknown]
  - Product dose omission issue [Unknown]
  - Asthma [Unknown]
  - Neuropathy peripheral [Unknown]
  - Palpitations [Unknown]
  - Chest discomfort [Unknown]
  - Heart rate increased [Unknown]
  - Extrasystoles [Unknown]
  - Somnolence [Unknown]
  - Product residue present [Unknown]
  - Epstein-Barr virus infection reactivation [Unknown]
  - Sleep disorder [Unknown]

NARRATIVE: CASE EVENT DATE: 20250903
